FAERS Safety Report 7295882-2 (Version None)
Quarter: 2011Q1

REPORT INFORMATION
  Report Type: 
  Country: None (occurrence: None)
  Receive Date: 20110216
  Receipt Date: 20110201
  Transmission Date: 20110831
  Serious: Yes (Life-Threatening, Hospitalization, Other)
  Sender: FDA-Public Use
  Company Number: US-AMGEN-KDC420105

PATIENT
  Age: 76 Year
  Sex: Male
  Weight: 113.64 kg

DRUGS (42)
  1. CEFADROXIL [Concomitant]
  2. PREDNISONE TAB [Concomitant]
     Indication: CHRONIC OBSTRUCTIVE PULMONARY DISEASE
  3. WARFARIN SODIUM [Concomitant]
     Dosage: 6 MG, QD
     Route: 048
     Dates: start: 20100716
  4. HEPARIN [Concomitant]
     Route: 042
     Dates: start: 20100519, end: 20100519
  5. HUMIBID [Concomitant]
     Route: 048
     Dates: start: 20100407, end: 20100411
  6. CLARITHROMYCIN [Concomitant]
     Route: 048
     Dates: start: 20100412, end: 20100419
  7. PNEUMOVAX 23 [Concomitant]
     Route: 030
     Dates: start: 20100407, end: 20100407
  8. AUGMENTIN '125' [Concomitant]
  9. PREDNISONE TAB [Concomitant]
     Indication: DYSPNOEA
  10. HEPARIN [Concomitant]
     Route: 042
     Dates: start: 20100522, end: 20100522
  11. AZITHROMYCIN [Concomitant]
     Route: 042
     Dates: start: 20100406, end: 20100411
  12. LEVOFLOXACIN [Concomitant]
  13. LISINOPRIL [Concomitant]
     Indication: HYPERTENSION
     Dosage: 10 MG, QD
     Route: 048
     Dates: start: 20100412
  14. LISINOPRIL [Concomitant]
     Route: 048
     Dates: start: 20100408, end: 20100409
  15. LISINOPRIL [Concomitant]
     Route: 048
     Dates: start: 20100413, end: 20100714
  16. OXYGEN [Concomitant]
     Dosage: 3 L, UNK
  17. HEPARIN [Concomitant]
     Indication: THROMBOSIS
     Route: 058
     Dates: start: 20100406, end: 20100412
  18. LASIX [Concomitant]
  19. ATORVASTATIN CALCIUM [Concomitant]
     Dosage: 10 MG, QD
     Route: 048
     Dates: start: 20100408
  20. METFORMIN HCL [Concomitant]
     Indication: DIABETES MELLITUS
     Dosage: 500 MG, BID
     Route: 048
     Dates: start: 20100320
  21. OMEPRAZOLE [Concomitant]
     Route: 048
     Dates: start: 20100519, end: 20100621
  22. ASPIRIN [Concomitant]
     Route: 048
     Dates: start: 20100407, end: 20100411
  23. HEPARIN [Concomitant]
     Route: 042
     Dates: start: 20100621, end: 20100714
  24. BACTROBAN [Concomitant]
     Route: 050
     Dates: start: 20100520, end: 20100523
  25. MORPHINE [Concomitant]
     Route: 042
     Dates: start: 20100621, end: 20100626
  26. DENOSUMAB [Suspect]
     Indication: PROSTATE CANCER
     Dosage: 60 MG, Q6MO
     Route: 058
     Dates: start: 20091013
  27. SULTAMICILLIN [Concomitant]
  28. LEVEMIR [Concomitant]
     Indication: DIABETES MELLITUS
     Dosage: 10 IU, QD
     Route: 058
     Dates: start: 20100518
  29. ALBUTEROL SULFATE [Concomitant]
     Dosage: UNK UNK, UNK
     Route: 055
  30. INSULIN GLARGINE [Concomitant]
  31. FLUTICASONE/SALMETEROL [Concomitant]
     Dosage: UNK UNK, UNK
     Route: 055
  32. VERAPAMIL [Concomitant]
     Dosage: UNK UNK, UNK
     Route: 048
  33. TIOTROPIUM BROMIDE [Concomitant]
  34. ACETAMINOPHEN [Concomitant]
  35. HEPARIN [Concomitant]
     Route: 042
     Dates: start: 20100518, end: 20100523
  36. WARFARIN SODIUM [Concomitant]
     Indication: THROMBOSIS
  37. DONEEZIL HYDROCHLORIDE [Concomitant]
     Dosage: UNK UNK, UNK
     Route: 048
  38. NOVOLIN R [Concomitant]
     Indication: DIABETES MELLITUS
  39. LISINOPRIL [Concomitant]
     Route: 048
     Dates: start: 20100410, end: 20100412
  40. VENTOLIN HFA [Concomitant]
     Indication: DYSPNOEA
  41. PROTONIX [Concomitant]
     Route: 048
     Dates: start: 20100407, end: 20100411
  42. NEUTRA-PHOS                        /00555301/ [Concomitant]
     Route: 048
     Dates: start: 20100622, end: 20100723

REACTIONS (3)
  - EXTRASYSTOLES [None]
  - LIVER FUNCTION TEST ABNORMAL [None]
  - PERIPHERAL ISCHAEMIA [None]
